FAERS Safety Report 9681104 (Version 1)
Quarter: 2013Q4

REPORT INFORMATION
  Report Type: Spontaneous
  Country: US (occurrence: None)
  Receive Date: 20131108
  Receipt Date: 20131108
  Transmission Date: 20140711
  Serious: No
  Sender: FDA-Public Use
  Company Number: None

PATIENT
  Age: 39 Year
  Sex: Female
  Weight: 90.72 kg

DRUGS (2)
  1. METOPROLOL TARTRATE [Suspect]
     Indication: HEART RATE INCREASED
     Dosage: 1 TABLET TWICE DAILY
     Route: 048
  2. METOPROLOL TARTRATE [Suspect]
     Indication: HYPERTENSION
     Dosage: 1 TABLET TWICE DAILY
     Route: 048

REACTIONS (5)
  - Drug ineffective [None]
  - Blood pressure increased [None]
  - Heart rate increased [None]
  - Palpitations [None]
  - Product substitution issue [None]
